FAERS Safety Report 6984474-8 (Version None)
Quarter: 2010Q3

REPORT INFORMATION
  Report Type: 
  Country: None (occurrence: None)
  Receive Date: 20100913
  Receipt Date: 20100829
  Transmission Date: 20110219
  Serious: Yes (Life-Threatening, Hospitalization, Other)
  Sender: FDA-Public Use
  Company Number: A-US2010-39621

PATIENT
  Age: 14 Year
  Sex: Female

DRUGS (4)
  1. VENTAVIS [Suspect]
     Indication: PULMONARY HYPERTENSION
  2. SILDENAFIL CITRATE [Suspect]
  3. NITRIC OXIDE [Suspect]
  4. OXYGEN (OXYGEN) [Concomitant]

REACTIONS (11)
  - ATRIAL PRESSURE INCREASED [None]
  - CHEST X-RAY ABNORMAL [None]
  - CIRCULATORY COLLAPSE [None]
  - CONDITION AGGRAVATED [None]
  - LUNG TRANSPLANT [None]
  - OXYGEN SATURATION DECREASED [None]
  - PULMONARY ARTERIAL PRESSURE [None]
  - PULMONARY EMBOLISM [None]
  - PULMONARY VENO-OCCLUSIVE DISEASE [None]
  - RIGHT VENTRICULAR HYPERTROPHY [None]
  - STAPHYLOCOCCAL BACTERAEMIA [None]
